FAERS Safety Report 12531689 (Version 1)
Quarter: 2016Q3

REPORT INFORMATION
  Report Type: Spontaneous
  Country: JP (occurrence: JP)
  Receive Date: 20160706
  Receipt Date: 20160706
  Transmission Date: 20161109
  Serious: Yes (Other)
  Sender: FDA-Public Use
  Company Number: JP-NORTHSTAR HEALTHCARE HOLDINGS-JP-2016NSR001807

PATIENT

DRUGS (1)
  1. ALLOPURINOL. [Suspect]
     Active Substance: ALLOPURINOL
     Indication: HYPERURICAEMIA
     Dosage: UNK

REACTIONS (6)
  - Lymphocyte stimulation test positive [Recovered/Resolved]
  - Erythema [Recovered/Resolved]
  - Eosinophilia [Recovered/Resolved]
  - Pruritus generalised [Recovered/Resolved]
  - Skin plaque [Recovered/Resolved]
  - Eosinophilic pustular folliculitis [Recovered/Resolved]
